FAERS Safety Report 8767277 (Version 1)
Quarter: 2012Q4

REPORT INFORMATION
  Report Type: 
  Country: US (occurrence: US)
  Receive Date: 20120904
  Receipt Date: 20120904
  Transmission Date: 20130627
  Serious: Yes (Other)
  Sender: FDA-Public Use
  Company Number: PHEH2012US016996

PATIENT
  Sex: Female

DRUGS (12)
  1. VOLTAREN [Suspect]
     Dosage: UNK UKN, UNK
  2. METHOTREXATE [Concomitant]
     Dosage: 2.5 mg (5 x per week)
  3. LEUCOVORIN [Concomitant]
     Dosage: 5 mg, (2 x per week)
  4. PREDNISONE [Concomitant]
     Dosage: 5 mg, ONCE/SINGLE
  5. FOLIC ACID [Concomitant]
     Dosage: 1 mg, ONCE/SINGLE
  6. TYLENOL [Concomitant]
     Dosage: 500 mg, UNK
  7. LOVASTATIN [Concomitant]
     Dosage: 20 mg, ONCE/SINGLE
  8. LEVOTHYROXINE [Concomitant]
     Dosage: 88 ug, UNK
  9. ASPIRIN [Concomitant]
     Dosage: 81 mg, ONCE/SINGLE
  10. RANITIDINE [Concomitant]
     Dosage: 150 mg, BID
  11. CALCIUM [Concomitant]
     Dosage: UNK UKN, UNK
  12. CENTRUM [Concomitant]
     Dosage: UNK UKN, UNK

REACTIONS (3)
  - Rheumatoid arthritis [Unknown]
  - Osteoarthritis [Unknown]
  - Rash [Unknown]
